FAERS Safety Report 11255173 (Version 3)
Quarter: 2016Q3

REPORT INFORMATION
  Report Type: Spontaneous
  Country: US (occurrence: US)
  Receive Date: 20150709
  Receipt Date: 20160912
  Transmission Date: 20161109
  Serious: Yes (Other)
  Sender: FDA-Public Use
  Company Number: US-JNJFOC-20150704659

PATIENT
  Age: 71 Year
  Sex: Male

DRUGS (3)
  1. XARELTO [Suspect]
     Active Substance: RIVAROXABAN
     Indication: THROMBOSIS
     Route: 048
     Dates: start: 201407
  2. ASPIRIN. [Suspect]
     Active Substance: ASPIRIN
     Indication: ANTICOAGULANT THERAPY
     Route: 065
  3. XARELTO [Suspect]
     Active Substance: RIVAROXABAN
     Indication: THROMBOSIS
     Dosage: VARYING DOSES OF 10-20 MG
     Route: 048
     Dates: start: 201301, end: 20140721

REACTIONS (3)
  - Internal haemorrhage [Unknown]
  - Gastric haemorrhage [Not Recovered/Not Resolved]
  - Arteriovenous fistula site haemorrhage [Recovering/Resolving]

NARRATIVE: CASE EVENT DATE: 20130123
